FAERS Safety Report 18006963 (Version 1)
Quarter: 2020Q3

REPORT INFORMATION
  Report Type: Spontaneous
  Country: US (occurrence: US)
  Receive Date: 20200710
  Receipt Date: 20200710
  Transmission Date: 20201103
  Serious: No
  Sender: FDA-Public Use
  Company Number: None

PATIENT
  Age: 75 Year
  Sex: Female
  Weight: 59.6 kg

DRUGS (16)
  1. AZTREONAM 2,000 MG IV Q8H [Concomitant]
     Dates: start: 20200704, end: 20200709
  2. PANTOPRAZOLE 40 MG IV DAILY [Concomitant]
     Dates: start: 20200705
  3. SPIRIVA INHALATION CAPSULE 18 MCG DAILY [Concomitant]
     Dates: start: 20200629
  4. REMDESIVIR. [Suspect]
     Active Substance: REMDESIVIR
     Indication: COVID-19
     Route: 042
     Dates: start: 20200704, end: 20200708
  5. ACETAMINOPHEN 1000 MG PO Q8H [Concomitant]
     Dates: start: 20200707
  6. ASPIRIN CHEWABLE 81 MG PO DAILY [Concomitant]
     Dates: start: 20200629
  7. DEXAMETHASONE 6 MG IV DAILY [Concomitant]
     Dates: start: 20200703
  8. ENOXAPARIN 40 MG SUBQ NIGHTLY [Concomitant]
     Dates: start: 20200628
  9. POLYETHYLENE GLYCOL 17 G PO DAILY [Concomitant]
     Dates: start: 20200702
  10. SENNA?DOCUSATE 8.6/50 MG PO DAILY [Concomitant]
     Dates: start: 20200702
  11. CLINDAMYCIN 600 MG IV Q8H [Concomitant]
     Dates: start: 20200704, end: 20200709
  12. LIDOCAINE 5% TRANSDERMAL PATCH DAILY [Concomitant]
     Dates: start: 20200703
  13. REMDESIVIR INJECTION [Concomitant]
     Active Substance: REMDESIVIR
     Dates: start: 20200704, end: 20200708
  14. LACTOBACILLUS CAPSULE PO TWICE DAILY [Concomitant]
     Dates: start: 20200702
  15. BREO ELLIPTA 200/25 MCG 1 PUFF INH DAILY [Concomitant]
     Dates: start: 20200629
  16. POTASSIUM CHLORIDE 40 MEQ IV ONCE [Concomitant]
     Dates: start: 20200709

REACTIONS (1)
  - Seizure [None]

NARRATIVE: CASE EVENT DATE: 20200709
